FAERS Safety Report 8236932-6 (Version None)
Quarter: 2012Q1

REPORT INFORMATION
  Report Type: 
  Country: None (occurrence: None)
  Receive Date: 20120327
  Receipt Date: 20120319
  Transmission Date: 20120608
  Serious: Yes (Other)
  Sender: FDA-Public Use
  Company Number: PHHY2012PE024273

PATIENT
  Age: 8 Year
  Sex: Male

DRUGS (2)
  1. RITALIN [Suspect]
     Dosage: 1.5 DF, BID
     Dates: end: 20120115
  2. RITALIN [Suspect]
     Dosage: 0.5 DF, BID
     Dates: start: 20110701, end: 20120115

REACTIONS (5)
  - DEPRESSION [None]
  - ABULIA [None]
  - DYSPHEMIA [None]
  - INFLUENZA [None]
  - DECREASED APPETITE [None]
